FAERS Safety Report 24549114 (Version 1)
Quarter: 2024Q4

REPORT INFORMATION
  Report Type: Spontaneous
  Country: AE (occurrence: AE)
  Receive Date: 20241025
  Receipt Date: 20241025
  Transmission Date: 20250115
  Serious: Yes (Other)
  Sender: PFIZER
  Company Number: AE-PFIZER INC-PV202400136906

PATIENT
  Age: 47 Year
  Sex: Female

DRUGS (3)
  1. IBRANCE [Suspect]
     Active Substance: PALBOCICLIB
     Indication: Breast cancer metastatic
     Dosage: 125 MG, CYCLIC (FOR 21 DAYS FOLLOWED BY 7 DAYS OFF)
     Route: 048
     Dates: start: 20210715
  2. FEMARA [Concomitant]
     Active Substance: LETROZOLE
     Dosage: UNK
  3. FULVESTRANT [Concomitant]
     Active Substance: FULVESTRANT
     Dosage: UNK

REACTIONS (4)
  - Immunodeficiency [Recovering/Resolving]
  - Infection [Recovering/Resolving]
  - Hypertension [Recovering/Resolving]
  - Neuritis [Recovering/Resolving]
